FAERS Safety Report 16201427 (Version 1)
Quarter: 2019Q2

REPORT INFORMATION
  Report Type: Spontaneous
  Country: US (occurrence: US)
  Receive Date: 20190415
  Receipt Date: 20190415
  Transmission Date: 20190711
  Serious: Yes (Other)
  Sender: FDA-Public Use
  Company Number: None

PATIENT
  Age: 78 Year
  Sex: Male
  Weight: 75.15 kg

DRUGS (22)
  1. FINASTERIDE. [Concomitant]
     Active Substance: FINASTERIDE
  2. MULTIVITAMIN [Concomitant]
     Active Substance: VITAMINS
  3. PANTOPROZOLE [Concomitant]
  4. ATORVASTATIN [Concomitant]
     Active Substance: ATORVASTATIN
  5. BIOTIN [Concomitant]
     Active Substance: BIOTIN
  6. SELENIUM [Concomitant]
     Active Substance: SELENIUM
  7. GINKGO [Concomitant]
     Active Substance: GINKGO
  8. ALFALFA [Concomitant]
     Active Substance: ALFALFA
  9. CAYENNE [Concomitant]
  10. CRANBERRY EXTRACT [Concomitant]
     Active Substance: CRANBERRY JUICE
  11. ZINC. [Concomitant]
     Active Substance: ZINC
  12. TRAMADOL. [Concomitant]
     Active Substance: TRAMADOL
  13. ERLEADA [Suspect]
     Active Substance: APALUTAMIDE
     Indication: NEOPLASM PROSTATE
     Route: 048
     Dates: start: 20190216
  14. AMLODIPINE [Concomitant]
     Active Substance: AMLODIPINE BESYLATE
  15. TAMSULOSIN [Concomitant]
     Active Substance: TAMSULOSIN
  16. PROBITIC [Concomitant]
  17. BEARBERRY LEAF EXTRACT [Concomitant]
  18. TEA [Concomitant]
     Active Substance: TEA LEAF
  19. GLUCOSAMINE [Concomitant]
     Active Substance: GLUCOSAMINE
  20. METHOCARBAMOL. [Concomitant]
     Active Substance: METHOCARBAMOL
  21. CAPSICUM OLEORESIN [Concomitant]
     Active Substance: CAPSICUM OLEORESIN
  22. MAGNISIUM AMINO ACID CHELATE [Concomitant]

REACTIONS (2)
  - Dizziness [None]
  - Fatigue [None]
